FAERS Safety Report 6010783-5 (Version None)
Quarter: 2008Q4

REPORT INFORMATION
  Report Type: 
  Country: None (occurrence: None)
  Receive Date: 20081218
  Receipt Date: 20081209
  Transmission Date: 20090506
  Serious: Yes (Hospitalization, Other)
  Sender: FDA-Public Use
  Company Number: PHHY2008GB31036

PATIENT
  Sex: Female

DRUGS (4)
  1. CLOZARIL [Suspect]
     Indication: SCHIZOPHRENIA
     Dosage: 100 MG/DAY
     Dates: start: 20081120, end: 20081128
  2. AMOXICILLIN [Concomitant]
  3. HALOPERIDOL [Concomitant]
  4. DEPAKOTE [Concomitant]

REACTIONS (5)
  - LETHARGY [None]
  - NEUTROPHIL COUNT DECREASED [None]
  - OXYGEN SATURATION DECREASED [None]
  - SOMNOLENCE [None]
  - WHITE BLOOD CELL COUNT DECREASED [None]
